FAERS Safety Report 6003763-7 (Version None)
Quarter: 2008Q4

REPORT INFORMATION
  Report Type: 
  Country: None (occurrence: None)
  Receive Date: 20081216
  Receipt Date: 20081208
  Transmission Date: 20090506
  Serious: Yes (Death, Other)
  Sender: FDA-Public Use
  Company Number: PHEH2006US05879

PATIENT
  Sex: Male
  Weight: 80.726 kg

DRUGS (5)
  1. ZOMETA [Suspect]
  2. AREDIA [Suspect]
     Indication: METASTASES TO BONE
  3. AREDIA [Suspect]
     Indication: MULTIPLE MYELOMA
  4. CHEMOTHERAPEUTICS NOS [Concomitant]
  5. TYLENOL (CAPLET) [Concomitant]

REACTIONS (19)
  - ANXIETY [None]
  - ASTHENIA [None]
  - BONE DISORDER [None]
  - COUGH [None]
  - DEATH [None]
  - DECREASED INTEREST [None]
  - DENTAL OPERATION [None]
  - DENTOFACIAL ANOMALY [None]
  - DYSPHAGIA [None]
  - EMOTIONAL DISTRESS [None]
  - GENERAL PHYSICAL HEALTH DETERIORATION [None]
  - HYPERHIDROSIS [None]
  - INFECTION [None]
  - LIFE EXPECTANCY SHORTENED [None]
  - OSTEONECROSIS [None]
  - PAIN [None]
  - PYREXIA [None]
  - TOOTH EXTRACTION [None]
  - VOMITING [None]
